FAERS Safety Report 12632648 (Version 2)
Quarter: 2016Q3

REPORT INFORMATION
  Report Type: Spontaneous
  Country: US (occurrence: US)
  Receive Date: 20160808
  Receipt Date: 20160808
  Transmission Date: 20161109
  Serious: No
  Sender: FDA-Public Use
  Company Number: US-BEH-2015056408

PATIENT
  Sex: Male
  Weight: 76 kg

DRUGS (27)
  1. ATORVASTATIN [Concomitant]
     Active Substance: ATORVASTATIN
  2. IBUPROFEN. [Concomitant]
     Active Substance: IBUPROFEN
  3. TEMAZEPAM. [Concomitant]
     Active Substance: TEMAZEPAM
  4. LEVOTHYROXINE. [Concomitant]
     Active Substance: LEVOTHYROXINE
  5. ALBUTEROL SULFATE. [Concomitant]
     Active Substance: ALBUTEROL SULFATE
  6. CIPROFLOXACIN. [Concomitant]
     Active Substance: CIPROFLOXACIN
  7. FLONASE [Concomitant]
     Active Substance: FLUTICASONE PROPIONATE
  8. AZELASTINE [Concomitant]
     Active Substance: AZELASTINE
  9. TUMS [Concomitant]
     Active Substance: CALCIUM CARBONATE
  10. SERTRALINE [Concomitant]
     Active Substance: SERTRALINE HYDROCHLORIDE
  11. L-M-X [Concomitant]
  12. OMEPRAZOLE. [Concomitant]
     Active Substance: OMEPRAZOLE
  13. FLOVENT [Concomitant]
     Active Substance: FLUTICASONE PROPIONATE
  14. PANTOPRAZOLE [Concomitant]
     Active Substance: PANTOPRAZOLE SODIUM
  15. XOPENEX [Concomitant]
     Active Substance: LEVALBUTEROL HYDROCHLORIDE
  16. ASPIRIN. [Concomitant]
     Active Substance: ASPIRIN
  17. DIPHENHYDRAMINE. [Concomitant]
     Active Substance: DIPHENHYDRAMINE
  18. HIZENTRA [Suspect]
     Active Substance: HUMAN IMMUNOGLOBULIN G
     Indication: HYPOGAMMAGLOBULINAEMIA
     Route: 058
  19. PROVENTIL [Concomitant]
     Active Substance: ALBUTEROL
  20. FLECAINIDE ACETATE. [Concomitant]
     Active Substance: FLECAINIDE ACETATE
  21. METOCLOPRAMIDE. [Concomitant]
     Active Substance: METOCLOPRAMIDE
  22. CHOLECALCIFEROL [Concomitant]
     Active Substance: CHOLECALCIFEROL
  23. EPIPEN [Concomitant]
     Active Substance: EPINEPHRINE
  24. PROLASTIN [Concomitant]
     Active Substance: .ALPHA.1-PROTEINASE INHIBITOR HUMAN
  25. MONTELUKAST [Concomitant]
     Active Substance: MONTELUKAST SODIUM
  26. SPIRIVA [Concomitant]
     Active Substance: TIOTROPIUM BROMIDE MONOHYDRATE
  27. VITAMIN D3 [Concomitant]
     Active Substance: CHOLECALCIFEROL

REACTIONS (1)
  - Sinusitis [Unknown]
